FAERS Safety Report 6242031-5 (Version None)
Quarter: 2009Q2

REPORT INFORMATION
  Report Type: 
  Country: None (occurrence: None)
  Receive Date: 20090623
  Receipt Date: 20090609
  Transmission Date: 20091009
  Serious: Yes (Hospitalization)
  Sender: FDA-Public Use
  Company Number: PHHY2009JP15117

PATIENT
  Sex: Male
  Weight: 48 kg

DRUGS (11)
  1. DIOVAN [Suspect]
     Indication: HYPERTENSION
     Dosage: 160 MG, QD
     Route: 048
     Dates: start: 20070226, end: 20090206
  2. DIOVAN [Suspect]
     Dosage: 80 MG, QD
     Route: 048
     Dates: start: 20060802, end: 20070225
  3. ASPIRIN [Concomitant]
     Indication: CORONARY ARTERY BYPASS
     Dosage: 100 MG/DAY
     Route: 048
     Dates: start: 20060802, end: 20090208
  4. PANALDINE [Concomitant]
     Indication: CORONARY ARTERY BYPASS
     Dosage: 200 MG
     Route: 048
     Dates: start: 20090228
  5. TENORMIN [Concomitant]
     Indication: ARRHYTHMIA
     Dosage: 20 MG/DAY
     Route: 048
     Dates: start: 20081025
  6. LASIX [Concomitant]
     Indication: OEDEMA
     Dosage: 20 MG/DAY
     Route: 048
     Dates: start: 20090203
  7. FERROMIA [Concomitant]
     Indication: ANAEMIA
     Dosage: 50 MG/DAY
     Route: 048
     Dates: start: 20060802
  8. GASTER D [Concomitant]
     Indication: GASTRITIS
     Dosage: 20 MG/DAY
     Route: 048
     Dates: start: 20060802
  9. ADALAT CC [Concomitant]
     Indication: HYPERTENSION
     Dosage: 40 MG
     Route: 048
     Dates: start: 20080321
  10. ADALAT [Concomitant]
     Indication: HYPERTENSION
     Dosage: 20 MG/DAY
     Route: 048
     Dates: start: 20090226
  11. ZYLORIC [Concomitant]
     Indication: HYPERURICAEMIA
     Dosage: 600 MG/DAY
     Route: 048
     Dates: start: 20090206

REACTIONS (6)
  - BLOOD CREATININE INCREASED [None]
  - BLOOD GLUCOSE INCREASED [None]
  - BLOOD URIC ACID INCREASED [None]
  - ELECTROCARDIOGRAM QT PROLONGED [None]
  - HYPERKALAEMIA [None]
  - OEDEMA PERIPHERAL [None]
